FAERS Safety Report 20948746 (Version 6)
Quarter: 2022Q4

REPORT INFORMATION
  Report Type: Report from Study
  Country: JP (occurrence: JP)
  Receive Date: 20220612
  Receipt Date: 20221118
  Transmission Date: 20230112
  Serious: Yes (Hospitalization, Disabling)
  Sender: FDA-Public Use
  Company Number: JP-JNJJAKJPN-201940231

PATIENT
  Age: 66 Year
  Sex: Male
  Weight: 63.9 kg

DRUGS (21)
  1. SIRTURO [Suspect]
     Active Substance: BEDAQUILINE FUMARATE
     Indication: Pulmonary tuberculosis
     Route: 048
     Dates: start: 20190125, end: 20190207
  2. SIRTURO [Suspect]
     Active Substance: BEDAQUILINE FUMARATE
     Route: 048
     Dates: start: 20190208, end: 20190730
  3. SIRTURO [Suspect]
     Active Substance: BEDAQUILINE FUMARATE
     Route: 048
     Dates: start: 20190810
  4. ZYVOX [Suspect]
     Active Substance: LINEZOLID
     Indication: Pulmonary tuberculosis
     Dosage: DOSE UNKNOWN
     Route: 048
     Dates: start: 20190119, end: 20190730
  5. ETHIONAMIDE [Suspect]
     Active Substance: ETHIONAMIDE
     Indication: Pulmonary tuberculosis
     Route: 048
     Dates: start: 20190130, end: 20190730
  6. ETHIONAMIDE [Suspect]
     Active Substance: ETHIONAMIDE
     Route: 048
     Dates: start: 20190820
  7. DELAMANID [Concomitant]
     Active Substance: DELAMANID
     Indication: Pulmonary tuberculosis
     Route: 048
     Dates: start: 20190119, end: 20190730
  8. DELAMANID [Concomitant]
     Active Substance: DELAMANID
     Route: 048
     Dates: start: 20190810
  9. CYCLOSERINE [Concomitant]
     Active Substance: CYCLOSERINE
     Indication: Pulmonary tuberculosis
     Route: 048
     Dates: start: 20190119, end: 20190730
  10. CYCLOSERINE [Concomitant]
     Active Substance: CYCLOSERINE
     Route: 048
     Dates: start: 20190810
  11. ENVIOMYCIN SULFATE [Concomitant]
     Active Substance: ENVIOMYCIN SULFATE
     Indication: Pulmonary tuberculosis
     Route: 065
     Dates: start: 20190130, end: 20190730
  12. ENVIOMYCIN SULFATE [Concomitant]
     Active Substance: ENVIOMYCIN SULFATE
     Route: 065
     Dates: start: 20191009
  13. LACTATED RINGERS SOLUTION [Concomitant]
     Active Substance: CALCIUM CHLORIDE\POTASSIUM CHLORIDE\SODIUM CHLORIDE\SODIUM LACTATE
     Indication: Renal impairment
     Route: 065
     Dates: start: 20190730, end: 20190804
  14. METHYLCOBALAMIN [Concomitant]
     Active Substance: METHYLCOBALAMIN
     Indication: Neuropathy peripheral
     Route: 048
     Dates: start: 20190820
  15. PYRIDOXAL [Concomitant]
     Active Substance: PYRIDOXAL
     Indication: Neuropathy peripheral
     Route: 065
     Dates: start: 20190701
  16. PRIMPERAN [Concomitant]
     Active Substance: METOCLOPRAMIDE HYDROCHLORIDE
     Indication: Nausea
     Route: 048
     Dates: start: 20190323
  17. DOMPERIDONE [Concomitant]
     Active Substance: DOMPERIDONE
     Indication: Nausea
     Route: 048
     Dates: start: 20190725
  18. MOSAPRIDE CITRATE DIHYDRATE [Concomitant]
     Active Substance: MOSAPRIDE CITRATE DIHYDRATE
     Indication: Decreased appetite
     Route: 048
     Dates: start: 20190205
  19. MIYA-BM [Concomitant]
     Active Substance: CLOSTRIDIUM BUTYRICUM SPORES STRAIN M-55
     Indication: Gastroenteritis
     Route: 048
  20. ENALAPRIL [Concomitant]
     Active Substance: ENALAPRIL
     Indication: Hypertension
     Route: 048
  21. VONOPRAZAN FUMARATE [Concomitant]
     Active Substance: VONOPRAZAN FUMARATE
     Indication: Gastrooesophageal reflux disease
     Route: 048
     Dates: start: 20190307

REACTIONS (6)
  - Renal impairment [Recovered/Resolved]
  - Neuropathy peripheral [Recovered/Resolved with Sequelae]
  - Decreased appetite [Recovering/Resolving]
  - Dehydration [Recovering/Resolving]
  - Nausea [Recovering/Resolving]
  - Gastrooesophageal reflux disease [Recovering/Resolving]

NARRATIVE: CASE EVENT DATE: 20190205
